FAERS Safety Report 9248980 (Version 1)
Quarter: 2013Q1

REPORT INFORMATION
  Report Type: Spontaneous
  Country: US (occurrence: None)
  Receive Date: 20130305
  Receipt Date: 20130305
  Transmission Date: 20140127
  Serious: Yes (Other)
  Sender: FDA-Public Use
  Company Number: 163-21880-12053114

PATIENT
  Age: 74 Year
  Sex: Female

DRUGS (4)
  1. REVLIMID [Suspect]
     Indication: LYMPHOMA
     Dosage: 25 MG, 21 IN 28 D, PO?TEMP. - INTERRUPTED
     Route: 048
     Dates: start: 20120503
  2. MATULANE [Concomitant]
  3. MEPRON [Concomitant]
  4. ASPIRIN [Concomitant]

REACTIONS (1)
  - White blood cell count decreased [None]
